FAERS Safety Report 10360564 (Version 3)
Quarter: 2014Q3

REPORT INFORMATION
  Report Type: Spontaneous
  Country: JP (occurrence: None)
  Receive Date: 20140731
  Receipt Date: 20140912
  Transmission Date: 20150326
  Serious: Yes (Other)
  Sender: FDA-Public Use
  Company Number: 2014-20069

PATIENT
  Age: 76 Year
  Sex: Male

DRUGS (3)
  1. ALPHAGAN P [Concomitant]
     Active Substance: BRIMONIDINE TARTRATE
  2. EYLEA [Suspect]
     Active Substance: AFLIBERCEPT
     Indication: AGE-RELATED MACULAR DEGENERATION
     Dosage: DAILY DOSE .05 ML, INTRAOCULAR?
     Route: 031
     Dates: start: 20140710, end: 20140710
  3. LATANOPROST. [Concomitant]
     Active Substance: LATANOPROST

REACTIONS (2)
  - Vitreous haemorrhage [None]
  - Vitreous opacities [None]

NARRATIVE: CASE EVENT DATE: 20140709
